FAERS Safety Report 19059066 (Version 1)
Quarter: 2021Q1

REPORT INFORMATION
  Report Type: Spontaneous
  Country: FR (occurrence: FR)
  Receive Date: 20210325
  Receipt Date: 20210325
  Transmission Date: 20210420
  Serious: Yes (Hospitalization)
  Sender: FDA-Public Use
  Company Number: FR-TEVA-2021-FR-1893374

PATIENT
  Age: 59 Year
  Sex: Female

DRUGS (3)
  1. FLUOROURACIL. [Suspect]
     Active Substance: FLUOROURACIL
     Indication: GASTRIC CANCER
     Dosage: 1950MG / M2 OR 3568MG, 1950MG / M2
     Route: 042
     Dates: start: 20210301
  2. DOCETAXEL. [Suspect]
     Active Substance: DOCETAXEL
     Indication: GASTRIC CANCER
     Dosage: 50MG / M2 OR 91.5MG EVERY 2 WEEKS, 50MG / M2
     Route: 042
     Dates: start: 20210301
  3. OXALIPLATINE [Suspect]
     Active Substance: OXALIPLATIN
     Indication: GASTRIC CANCER
     Dosage: 85MG / M2 OR 156MG EVERY 2 WEEKS,85MG / M2
     Route: 042
     Dates: start: 20210301

REACTIONS (2)
  - Pyrexia [Recovering/Resolving]
  - Erythema [Recovering/Resolving]

NARRATIVE: CASE EVENT DATE: 20210301
